FAERS Safety Report 11173865 (Version 1)
Quarter: 2015Q2

REPORT INFORMATION
  Report Type: Spontaneous
  Country: GB (occurrence: None)
  Receive Date: 20150605
  Receipt Date: 20150605
  Transmission Date: 20150821
  Serious: Yes (Death, Other)
  Sender: FDA-Public Use
  Company Number: 2015GB0295

PATIENT

DRUGS (2)
  1. ARA-C [Suspect]
     Active Substance: CYTARABINE
  2. KEPIVANCE [Suspect]
     Active Substance: PALIFERMIN

REACTIONS (1)
  - Acute lymphocytic leukaemia recurrent [None]
